FAERS Safety Report 5093443-7 (Version None)
Quarter: 2006Q3

REPORT INFORMATION
  Report Type: 
  Country: None (occurrence: None)
  Receive Date: 20060828
  Receipt Date: 20060816
  Transmission Date: 20061208
  Serious: Yes (Hospitalization)
  Sender: FDA-Public Use
  Company Number: 028-C5013-06080827

PATIENT
  Age: 61 Year
  Sex: Male
  Weight: 92.2 kg

DRUGS (7)
  1. REVLIMID [Suspect]
     Indication: MULTIPLE MYELOMA
     Dosage: QD FOR 21 DAYS, ORAL
     Route: 048
     Dates: start: 20060425, end: 20060815
  2. DEXAMETHASONE TAB [Suspect]
     Indication: MULTIPLE MYELOMA
     Dosage: 40 MG, ON DAYS 1-4, ON DAYS 9-12, 17-20, Q 28 CYCLE, ORAL
     Route: 048
     Dates: start: 20060425
  3. ASPIRIN [Concomitant]
  4. ALTACE [Concomitant]
  5. NORVASC [Concomitant]
  6. AVAPRO [Concomitant]
  7. FUROSEMIDE [Concomitant]

REACTIONS (2)
  - HYPERGLYCAEMIA [None]
  - PARTIAL SEIZURES [None]
